FAERS Safety Report 4533070-0 (Version None)
Quarter: 2004Q4

REPORT INFORMATION
  Report Type: 
  Country: None (occurrence: None)
  Receive Date: 20041220
  Receipt Date: 20041220
  Transmission Date: 20050328
  Serious: Yes (Life-Threatening, Hospitalization, Disabling)
  Sender: FDA-Public Use
  Company Number: None

PATIENT
  Age: 46 Year
  Sex: Male
  Weight: 74.8435 kg

DRUGS (1)
  1. WELLBUTRIN [Suspect]
     Indication: SMOKING CESSATION THERAPY
     Dates: start: 20040911, end: 20041024

REACTIONS (31)
  - ABDOMINAL PAIN UPPER [None]
  - AGITATION [None]
  - ANGER [None]
  - ANOREXIA [None]
  - ANXIETY [None]
  - ASTHENIA [None]
  - CONDITION AGGRAVATED [None]
  - CONFUSIONAL STATE [None]
  - DEPRESSION [None]
  - DIZZINESS [None]
  - DRUG INEFFECTIVE [None]
  - DYSGEUSIA [None]
  - HEADACHE [None]
  - HEART RATE INCREASED [None]
  - HOSTILITY [None]
  - HYPERHIDROSIS [None]
  - IMPULSIVE BEHAVIOUR [None]
  - INSOMNIA [None]
  - IRRITABILITY [None]
  - LIBIDO DECREASED [None]
  - MARITAL PROBLEM [None]
  - MYALGIA [None]
  - NERVOUSNESS [None]
  - PANIC ATTACK [None]
  - RESTLESSNESS [None]
  - SUICIDE ATTEMPT [None]
  - TINNITUS [None]
  - TREMOR [None]
  - VISION BLURRED [None]
  - VOMITING [None]
  - WEIGHT DECREASED [None]
